FAERS Safety Report 11799146 (Version 1)
Quarter: 2015Q4

REPORT INFORMATION
  Report Type: Report from Study
  Country: US (occurrence: US)
  Receive Date: 20151203
  Receipt Date: 20151203
  Transmission Date: 20160305
  Serious: No
  Sender: FDA-Public Use
  Company Number: US-AMGEN-USASL2015116209

PATIENT
  Age: 70 Year
  Sex: Male

DRUGS (3)
  1. REPATHA [Suspect]
     Active Substance: EVOLOCUMAB
     Indication: HYPERCHOLESTEROLAEMIA
     Dosage: 140 MG/ML, Q2WK
     Route: 065
     Dates: start: 20151026
  2. PROBIOTIC ACIDOPHILUS              /00079701/ [Concomitant]
     Dosage: UNK
  3. CITRUCEL [Concomitant]
     Active Substance: METHYLCELLULOSE (4000 MPA.S)
     Dosage: UNK

REACTIONS (6)
  - Stress [Unknown]
  - Abdominal discomfort [Recovering/Resolving]
  - Hunger [Unknown]
  - Gastrointestinal disorder [Unknown]
  - Constipation [Unknown]
  - Increased appetite [Unknown]

NARRATIVE: CASE EVENT DATE: 201510
